FAERS Safety Report 17353575 (Version 2)
Quarter: 2020Q1

REPORT INFORMATION
  Report Type: Spontaneous
  Country: US (occurrence: US)
  Receive Date: 20200131
  Receipt Date: 20200313
  Transmission Date: 20200409
  Serious: No
  Sender: FDA-Public Use
  Company Number: US-ASTRAZENECA-2020SE02259

PATIENT
  Sex: Female
  Weight: 49 kg

DRUGS (3)
  1. BEVESPI AEROSPHERE [Suspect]
     Active Substance: FORMOTEROL FUMARATE\GLYCOPYRROLATE
     Dosage: 94.8 UG/INHAL 2 PUFFS AT MORNING AND 2 PUFFS AT NIGHT
     Route: 055
  2. OXYCODONE [Concomitant]
     Active Substance: OXYCODONE
  3. XANAX [Concomitant]
     Active Substance: ALPRAZOLAM

REACTIONS (4)
  - Wrong technique in product usage process [Unknown]
  - Product use issue [Unknown]
  - Hypoacusis [Unknown]
  - Device issue [Unknown]
